FAERS Safety Report 12119213 (Version 1)
Quarter: 2016Q1

REPORT INFORMATION
  Report Type: Spontaneous
  Country: US (occurrence: None)
  Receive Date: 20160225
  Receipt Date: 20160225
  Transmission Date: 20160526
  Serious: Yes (Disabling)
  Sender: FDA-Public Use
  Company Number: None

PATIENT
  Age: 67 Year
  Sex: Female
  Weight: 81.65 kg

DRUGS (2)
  1. LEVAQUIN [Suspect]
     Active Substance: LEVOFLOXACIN
     Indication: STAG HORN CALCULUS
     Route: 048
     Dates: start: 20140715, end: 20140726
  2. LEVAQUIN [Suspect]
     Active Substance: LEVOFLOXACIN
     Indication: URINARY TRACT INFECTION
     Route: 048
     Dates: start: 20140715, end: 20140726

REACTIONS (5)
  - Muscle tightness [None]
  - Arthralgia [None]
  - Musculoskeletal pain [None]
  - Tendon pain [None]
  - Pain in extremity [None]

NARRATIVE: CASE EVENT DATE: 20140715
